FAERS Safety Report 20821430 (Version 5)
Quarter: 2022Q4

REPORT INFORMATION
  Report Type: Report from Study
  Country: US (occurrence: US)
  Receive Date: 20220512
  Receipt Date: 20221014
  Transmission Date: 20230112
  Serious: No
  Sender: FDA-Public Use
  Company Number: US-NOVARTISTESTPH-NVSC2022US109788

PATIENT
  Sex: Male

DRUGS (2)
  1. ENTRESTO [Suspect]
     Active Substance: SACUBITRIL\VALSARTAN
     Indication: Cardiac failure chronic
     Dosage: UNK (HIGHER DOSE)
     Route: 065
  2. ENTRESTO [Suspect]
     Active Substance: SACUBITRIL\VALSARTAN
     Indication: Cardiac failure
     Dosage: 0.5 DOSAGE FORM, BID (24/26 MG 1/2 TAB TWICE A DAY)
     Route: 048
     Dates: start: 20220508

REACTIONS (6)
  - Muscular weakness [Unknown]
  - Underdose [Unknown]
  - COVID-19 [Unknown]
  - Cough [Unknown]
  - Asthenia [Unknown]
  - Wrong technique in product usage process [Unknown]
